FAERS Safety Report 14517381 (Version 1)
Quarter: 2018Q1

REPORT INFORMATION
  Report Type: Spontaneous
  Country: US (occurrence: US)
  Receive Date: 20180212
  Receipt Date: 20180212
  Transmission Date: 20180509
  Serious: Yes (Other)
  Sender: FDA-Public Use
  Company Number: US-ROCHE-2069119

PATIENT
  Age: 45 Year
  Sex: Male
  Weight: 70 kg

DRUGS (2)
  1. OCREVUS [Suspect]
     Active Substance: OCRELIZUMAB
     Indication: MULTIPLE SCLEROSIS
     Dosage: TWO DOSES SEPARATED BY 14 DAYS
     Route: 042
     Dates: start: 201709
  2. OCREVUS [Suspect]
     Active Substance: OCRELIZUMAB
     Dosage: ONCE EVERY 6 MONTHS ;ONGOING: UNKNOWN
     Route: 042
     Dates: start: 201710

REACTIONS (9)
  - Amoebiasis [Unknown]
  - Asthenia [Unknown]
  - White blood cell count decreased [Unknown]
  - Blood lactate dehydrogenase increased [Unknown]
  - Immunodeficiency [Unknown]
  - Chromaturia [Unknown]
  - Ill-defined disorder [Unknown]
  - Thrombocytopenia [Unknown]
  - Chills [Unknown]
